FAERS Safety Report 9888616 (Version 2)
Quarter: 2014Q1

REPORT INFORMATION
  Report Type: Report from Study
  Country: US (occurrence: US)
  Receive Date: 20140211
  Receipt Date: 20140303
  Transmission Date: 20141002
  Serious: Yes (Death, Hospitalization)
  Sender: FDA-Public Use
  Company Number: US-ACTELION-A-US2014-94547

PATIENT
  Age: 74 Year
  Sex: Female

DRUGS (2)
  1. MACITENTAN [Suspect]
     Indication: PULMONARY ARTERIAL HYPERTENSION
     Route: 048
  2. COUMADIN [Concomitant]

REACTIONS (6)
  - Pulmonary arterial hypertension [Fatal]
  - Disease progression [Fatal]
  - General physical health deterioration [Fatal]
  - Respiratory failure [Fatal]
  - Hypoxia [Unknown]
  - Respiratory distress [Unknown]
